FAERS Safety Report 22107365 (Version 1)
Quarter: 2023Q1

REPORT INFORMATION
  Report Type: Spontaneous
  Country: US (occurrence: US)
  Receive Date: 20230317
  Receipt Date: 20230317
  Transmission Date: 20230418
  Serious: No
  Sender: FDA-Public Use
  Company Number: US-JNJFOC-20230318524

PATIENT
  Age: 6 Decade
  Sex: Male

DRUGS (2)
  1. MENS ROGAINE EXTRA STRENGTH [Suspect]
     Active Substance: MINOXIDIL
     Indication: Alopecia
     Dosage: DOSE: RECOMMENDED DOSE TWICE DAILY THEN ONCE A DAY AFTER SYMPTOMS BEGAN
     Route: 061
     Dates: start: 20221217, end: 2023
  2. MENS ROGAINE EXTRA STRENGTH [Suspect]
     Active Substance: MINOXIDIL
     Dosage: DOSE: RECOMMENDED DOSE TWICE DAILY THEN ONCE A DAY AFTER SYMPTOMS BEGAN
     Route: 061
     Dates: end: 2023

REACTIONS (1)
  - Skin disorder [Recovered/Resolved]

NARRATIVE: CASE EVENT DATE: 20221201
